FAERS Safety Report 4837052-0 (Version None)
Quarter: 2005Q4

REPORT INFORMATION
  Report Type: 
  Country: None (occurrence: None)
  Receive Date: 20051121
  Receipt Date: 20051121
  Transmission Date: 20060501
  Serious: Yes (Life-Threatening)
  Sender: FDA-Public Use
  Company Number: None

PATIENT
  Sex: Male
  Weight: 77.1115 kg

DRUGS (2)
  1. CELEBREX [Suspect]
     Indication: ARTHRITIS
     Dosage: 1 TAB THEN 2X A DAY
  2. VIOXX [Suspect]
     Indication: ARTHRITIS
     Dosage: 1 TAB THEN 2X A DAY

REACTIONS (1)
  - HYPERTENSION [None]
